FAERS Safety Report 12890746 (Version 2)
Quarter: 2024Q1

REPORT INFORMATION
  Report Type: Spontaneous
  Country: JP (occurrence: JP)
  Receive Date: 20161027
  Receipt Date: 20240326
  Transmission Date: 20240409
  Serious: Yes (Other)
  Sender: FDA-Public Use
  Company Number: JP-SA-2016SA184623

PATIENT
  Age: 81 Year
  Sex: Female

DRUGS (3)
  1. DOCETAXEL [Suspect]
     Active Substance: DOCETAXEL\DOCETAXEL ANHYDROUS
     Indication: Extramammary Paget^s disease
     Dosage: 60 MG/M2, QM
     Route: 065
  2. DOCETAXEL [Suspect]
     Active Substance: DOCETAXEL\DOCETAXEL ANHYDROUS
     Indication: Metastases to peritoneum
     Dosage: 25 MG/M2, QW
     Route: 065
  3. DOCETAXEL [Suspect]
     Active Substance: DOCETAXEL\DOCETAXEL ANHYDROUS
     Indication: Ileus paralytic

REACTIONS (3)
  - Neutropenia [Unknown]
  - Drug resistance [Unknown]
  - Drug ineffective [Unknown]
